FAERS Safety Report 6863398-0 (Version None)
Quarter: 2010Q3

REPORT INFORMATION
  Report Type: 
  Country: None (occurrence: None)
  Receive Date: 20100721
  Receipt Date: 20100713
  Transmission Date: 20110219
  Serious: Yes (Other)
  Sender: FDA-Public Use
  Company Number: CA-JNJFOC-20100403507

PATIENT
  Age: 50 Year
  Sex: Female

DRUGS (1)
  1. RISPERDAL CONSTA [Suspect]
     Indication: PRODUCT USED FOR UNKNOWN INDICATION
     Route: 030

REACTIONS (8)
  - ACTIVITIES OF DAILY LIVING IMPAIRED [None]
  - AMENORRHOEA [None]
  - CONFUSIONAL STATE [None]
  - HYPOAESTHESIA [None]
  - LOCAL SWELLING [None]
  - MENTAL IMPAIRMENT [None]
  - SPEECH DISORDER [None]
  - VISION BLURRED [None]
